FAERS Safety Report 14734396 (Version 2)
Quarter: 2018Q2

REPORT INFORMATION
  Report Type: Spontaneous
  Country: JP (occurrence: JP)
  Receive Date: 20180409
  Receipt Date: 20180424
  Transmission Date: 20180711
  Serious: Yes (Death, Hospitalization, Disabling)
  Sender: FDA-Public Use
  Company Number: JP-SA-2017SA260474

PATIENT
  Age: 74 Year
  Sex: Male
  Weight: 47.7 kg

DRUGS (12)
  1. SUREPOST [Concomitant]
     Active Substance: REPAGLINIDE
     Route: 048
  2. ITRIZOLE [Concomitant]
     Active Substance: ITRACONAZOLE
     Route: 048
  3. FUNGUARD [Concomitant]
     Active Substance: MICAFUNGIN SODIUM
     Route: 065
     Dates: start: 20170927, end: 20170927
  4. FUNGUARD [Concomitant]
     Active Substance: MICAFUNGIN SODIUM
     Route: 065
     Dates: start: 20170928, end: 20170930
  5. G-LASTA [Concomitant]
     Active Substance: PEGFILGRASTIM
     Route: 065
     Dates: start: 20170922, end: 20170922
  6. POLAPREZINC [Concomitant]
     Active Substance: POLAPREZINC
     Route: 048
  7. RECOMODULIN [Concomitant]
     Active Substance: THROMBOMODULIN ALFA
     Route: 065
     Dates: start: 20170927, end: 20170927
  8. RABEPRAZOLE [Concomitant]
     Active Substance: RABEPRAZOLE
     Route: 048
  9. PREDONINE [Concomitant]
     Active Substance: PREDNISOLONE
     Indication: PROSTATE CANCER
     Route: 048
  10. JEVTANA [Suspect]
     Active Substance: CABAZITAXEL
     Route: 042
     Dates: start: 20170920, end: 20170920
  11. DENOTAS CHEWABLE COMBINATION TABLET [Concomitant]
     Active Substance: CALCIUM CARBONATE\CHOLECALCIFEROL\MAGNESIUM CARBONATE
     Route: 048
  12. GASTER [Concomitant]
     Active Substance: FAMOTIDINE
     Route: 065
     Dates: start: 20170927, end: 20170928

REACTIONS (10)
  - White blood cell count decreased [Unknown]
  - Febrile neutropenia [Fatal]
  - Disseminated intravascular coagulation [Unknown]
  - Sepsis [Fatal]
  - Pyrexia [Unknown]
  - Platelet count decreased [Unknown]
  - Blood pressure decreased [Unknown]
  - Cardiac arrest [Fatal]
  - Haemorrhage [Unknown]
  - Pulmonary alveolar haemorrhage [Unknown]

NARRATIVE: CASE EVENT DATE: 20170927
